FAERS Safety Report 22319298 (Version 1)
Quarter: 2023Q2

REPORT INFORMATION
  Report Type: Spontaneous
  Country: CN (occurrence: CN)
  Receive Date: 20230515
  Receipt Date: 20230515
  Transmission Date: 20230722
  Serious: Yes (Disabling, Other)
  Sender: FDA-Public Use
  Company Number: CN-PFIZER INC-PV202300084199

PATIENT
  Age: 34 Year
  Sex: Female

DRUGS (3)
  1. VORICONAZOLE [Suspect]
     Active Substance: VORICONAZOLE
     Indication: Therapeutic procedure
     Dosage: 200 MG, 2X/DAY
     Route: 041
     Dates: start: 20230308, end: 20230315
  2. VORICONAZOLE [Suspect]
     Active Substance: VORICONAZOLE
     Indication: Antifungal treatment
  3. SODIUM CHLORIDE [Concomitant]
     Active Substance: SODIUM CHLORIDE
     Dosage: 50 ML, 2X/DAY
     Dates: start: 20230308

REACTIONS (2)
  - Liver injury [Recovering/Resolving]
  - Drug level increased [Unknown]

NARRATIVE: CASE EVENT DATE: 20230310
